FAERS Safety Report 9925458 (Version 1)
Quarter: 2014Q1

REPORT INFORMATION
  Report Type: Report from Study
  Country: US (occurrence: US)
  Receive Date: 20140226
  Receipt Date: 20140226
  Transmission Date: 20141002
  Serious: No
  Sender: FDA-Public Use
  Company Number: US-ALEXION-A201400589

PATIENT
  Age: 38 Year
  Sex: Female

DRUGS (11)
  1. SOLIRIS [Suspect]
     Indication: HAEMOLYTIC URAEMIC SYNDROME
     Dosage: 1200 MG, Q2W
     Route: 042
     Dates: start: 20130409, end: 20140210
  2. COREG [Concomitant]
     Dosage: 6.25 MG, BID
     Dates: start: 20130318
  3. FERREX FORTE [Concomitant]
     Indication: MINERAL SUPPLEMENTATION
     Dosage: 150 MG, QD
     Dates: start: 20130318
  4. FOLIC ACID [Concomitant]
     Dosage: 1 MG, QD
     Dates: start: 20130318
  5. HYDROXYZINE [Concomitant]
     Dosage: 25 MG, PRN
     Dates: start: 20130318
  6. MULTIVITAMINS PLUS IRON [Concomitant]
     Indication: MINERAL SUPPLEMENTATION
     Dosage: 1 TAB, QD
     Dates: start: 20130318
  7. NORVASC [Concomitant]
     Indication: HYPERTENSION
     Dosage: 5 MG, QD
     Dates: start: 20130318
  8. PHENERGAN                          /00033001/ [Concomitant]
     Dosage: 25 MG, PRN
     Dates: start: 20130318
  9. POTASSIUM [Concomitant]
     Dosage: 500 MG, BID
     Dates: start: 20130318
  10. TRAMADOL [Concomitant]
     Indication: PAIN
     Dosage: 50 MG, Q6HRS PRN
     Dates: start: 20130318
  11. XARELTO [Concomitant]
     Indication: ANTICOAGULANT THERAPY
     Dosage: 20 MG, QD
     Dates: start: 20130318

REACTIONS (3)
  - Adrenal insufficiency [Not Recovered/Not Resolved]
  - Tumour marker increased [Not Recovered/Not Resolved]
  - Hypotension [Not Recovered/Not Resolved]
